FAERS Safety Report 6370064-7 (Version None)
Quarter: 2009Q3

REPORT INFORMATION
  Report Type: 
  Country: None (occurrence: None)
  Receive Date: 20090923
  Receipt Date: 20070921
  Transmission Date: 20100115
  Serious: Yes (Hospitalization, Other)
  Sender: FDA-Public Use
  Company Number: US-ASTRAZENECA-2006UW22210

PATIENT
  Age: 19064 Day
  Sex: Female
  Weight: 99.8 kg

DRUGS (21)
  1. SEROQUEL [Suspect]
     Indication: SCHIZOPHRENIA
     Dosage: 25 MG TO 100 MG
     Route: 048
     Dates: start: 20030201, end: 20050101
  2. SEROQUEL [Suspect]
     Indication: DEPRESSION
     Dosage: 25 MG TO 100 MG
     Route: 048
     Dates: start: 20030201, end: 20050101
  3. SEROQUEL [Suspect]
     Dosage: 25-300MG
     Route: 048
     Dates: start: 20040225
  4. SEROQUEL [Suspect]
     Dosage: 25-300MG
     Route: 048
     Dates: start: 20040225
  5. ABILIFY [Concomitant]
     Route: 065
     Dates: start: 20031001
  6. NAVANE [Concomitant]
     Route: 065
  7. TRIFALON [Concomitant]
     Route: 065
  8. EFFEXOR [Concomitant]
     Route: 065
  9. MOTRIN [Concomitant]
     Route: 065
  10. NARDIL [Concomitant]
     Dosage: 15-20 MG
     Route: 065
  11. COGENTIN [Concomitant]
     Dosage: 0.5-1 MG
     Route: 065
  12. LAMICTAL [Concomitant]
     Dosage: 25-200 MG
     Route: 065
  13. GLUCOPHAGE [Concomitant]
     Route: 065
  14. PROTONIX [Concomitant]
     Route: 065
  15. ASPIRIN [Concomitant]
     Route: 065
  16. LIPITOR [Concomitant]
     Dosage: 20-40 MG
     Route: 065
  17. AVANDIA [Concomitant]
     Route: 065
  18. DETROL LA [Concomitant]
     Route: 065
  19. LEXAPRO [Concomitant]
     Dosage: 10-20 MG
     Route: 065
  20. FUROSEMIDE [Concomitant]
     Route: 065
  21. THIOTHIXENE [Concomitant]
     Dosage: 5-10 MG
     Route: 065

REACTIONS (19)
  - ANXIETY [None]
  - BLOOD CHOLESTEROL INCREASED [None]
  - BLOOD TRIGLYCERIDES INCREASED [None]
  - DELUSIONAL DISORDER, UNSPECIFIED TYPE [None]
  - DEPRESSION [None]
  - DIABETES MELLITUS [None]
  - DYSARTHRIA [None]
  - EXTRAPYRAMIDAL DISORDER [None]
  - HYPERGLYCAEMIA [None]
  - NAUSEA [None]
  - NICOTINE DEPENDENCE [None]
  - NIGHT SWEATS [None]
  - OEDEMA PERIPHERAL [None]
  - POST-TRAUMATIC STRESS DISORDER [None]
  - RESTLESS LEGS SYNDROME [None]
  - SLEEP APNOEA SYNDROME [None]
  - SUICIDE ATTEMPT [None]
  - TACHYCARDIA [None]
  - VOMITING [None]
